FAERS Safety Report 19877942 (Version 1)
Quarter: 2021Q3

REPORT INFORMATION
  Report Type: Spontaneous
  Country: US (occurrence: US)
  Receive Date: 20210923
  Receipt Date: 20210923
  Transmission Date: 20211014
  Serious: Yes (Other)
  Sender: FDA-Public Use
  Company Number: US-PFIZER INC-202101006916

PATIENT
  Age: 58 Year
  Sex: Female
  Weight: 92.08 kg

DRUGS (1)
  1. NICOTROL [Suspect]
     Active Substance: NICOTINE
     Dosage: UNK

REACTIONS (4)
  - Therapeutic product effect incomplete [Unknown]
  - Cardiac disorder [Unknown]
  - Weight decreased [Unknown]
  - Aortic aneurysm [Unknown]
